FAERS Safety Report 7568329-6 (Version None)
Quarter: 2011Q2

REPORT INFORMATION
  Report Type: 
  Country: None (occurrence: None)
  Receive Date: 20110623
  Receipt Date: 20110603
  Transmission Date: 20111010
  Serious: Yes (Hospitalization)
  Sender: FDA-Public Use
  Company Number: A0869629A

PATIENT
  Age: 63 Year
  Sex: Male

DRUGS (4)
  1. AVANDIA [Suspect]
     Dosage: 8MG PER DAY
     Dates: start: 20040308, end: 20090325
  2. METFORMIN HCL [Concomitant]
  3. TRICOR [Concomitant]
  4. AVANDAMET [Suspect]

REACTIONS (1)
  - MYOCARDIAL INFARCTION [None]
